FAERS Safety Report 8620179-5 (Version None)
Quarter: 2012Q3

REPORT INFORMATION
  Report Type: 
  Country: None (occurrence: None)
  Receive Date: 20120824
  Receipt Date: 20120817
  Transmission Date: 20120928
  Serious: Yes (Hospitalization, Other)
  Sender: FDA-Public Use
  Company Number: US-ABBOTT-12P-163-0969844-00

PATIENT
  Sex: Male

DRUGS (3)
  1. HUMIRA [Suspect]
     Indication: CROHN'S DISEASE
     Dates: start: 20090101, end: 20110101
  2. PREDNISONE TAB [Suspect]
     Indication: PRODUCT USED FOR UNKNOWN INDICATION
  3. HUMIRA [Suspect]
     Indication: ANKYLOSING SPONDYLITIS

REACTIONS (8)
  - ANAL FISTULA [None]
  - SINUSITIS [None]
  - LOWER LIMB FRACTURE [None]
  - BLINDNESS UNILATERAL [None]
  - IRITIS [None]
  - RETINAL DISORDER [None]
  - RIB FRACTURE [None]
  - CATARACT [None]
